FAERS Safety Report 13260642 (Version 1)
Quarter: 2017Q1

REPORT INFORMATION
  Report Type: Spontaneous
  Country: US (occurrence: US)
  Receive Date: 20170222
  Receipt Date: 20170222
  Transmission Date: 20170428
  Serious: Yes (Other)
  Sender: FDA-Public Use
  Company Number: US-JNJFOC-20170218642

PATIENT
  Age: 62 Year
  Sex: Male
  Weight: 99.79 kg

DRUGS (1)
  1. LEVAQUIN [Suspect]
     Active Substance: LEVOFLOXACIN
     Indication: SINUSITIS
     Dosage: START DATE: 20-22 DEC-2016
     Route: 048
     Dates: start: 201612, end: 201701

REACTIONS (4)
  - Tendon rupture [Unknown]
  - Drug dose omission [Unknown]
  - Drug ineffective [Unknown]
  - Foot fracture [Unknown]

NARRATIVE: CASE EVENT DATE: 201612
